FAERS Safety Report 6788244-5 (Version None)
Quarter: 2010Q2

REPORT INFORMATION
  Report Type: 
  Country: None (occurrence: None)
  Receive Date: 20100623
  Receipt Date: 20080208
  Transmission Date: 20101027
  Serious: No
  Sender: FDA-Public Use
  Company Number: US-PFIZER INC-2008013411

PATIENT
  Sex: Female

DRUGS (4)
  1. XALATAN [Suspect]
     Indication: GLAUCOMA
     Route: 047
     Dates: start: 20050101
  2. ARTIFICIAL TEARS [Concomitant]
     Indication: DRY EYE
  3. ZIAC [Concomitant]
     Indication: HYPERTENSION
  4. MULTIPLE VITAMINS [Concomitant]

REACTIONS (3)
  - ASTHENOPIA [None]
  - DRUG DOSE OMISSION [None]
  - EYE IRRITATION [None]
